FAERS Safety Report 6753217-5 (Version None)
Quarter: 2010Q2

REPORT INFORMATION
  Report Type: 
  Country: None (occurrence: None)
  Receive Date: 20100603
  Receipt Date: 20100603
  Transmission Date: 20101027
  Serious: No
  Sender: FDA-Public Use
  Company Number: None

PATIENT
  Age: 4 Year
  Sex: Male
  Weight: 20.8655 kg

DRUGS (1)
  1. CHILDREN'S TYLENOL SUSPENSION [Suspect]
     Indication: HEADACHE
     Dosage: 1 1/2 TSP EVERY 4 HOURS
     Dates: start: 20100522, end: 20100602

REACTIONS (6)
  - CONDITION AGGRAVATED [None]
  - HEADACHE [None]
  - MALAISE [None]
  - PRODUCT QUALITY ISSUE [None]
  - PYREXIA [None]
  - VOMITING [None]
